FAERS Safety Report 9510655 (Version 2)
Quarter: 2013Q4

REPORT INFORMATION
  Report Type: Spontaneous
  Country: US (occurrence: US)
  Receive Date: 20130909
  Receipt Date: 20131017
  Transmission Date: 20140711
  Serious: No
  Sender: FDA-Public Use
  Company Number: US-009507513-1309USA002861

PATIENT
  Age: 68 Year
  Sex: Female

DRUGS (10)
  1. JANUVIA [Suspect]
     Indication: DIABETES MELLITUS
     Dosage: 100 MG, QD
     Route: 048
     Dates: end: 20130903
  2. LANTUS [Concomitant]
  3. NOVOLIN [Concomitant]
  4. AMLODIPINE [Concomitant]
  5. ALLOPURINOL [Concomitant]
  6. FUROSEMIDE [Concomitant]
  7. LEVOXYL [Concomitant]
  8. METOPROLOL [Concomitant]
  9. PRANDIN (DEFLAZACORT) [Concomitant]
  10. PROCRIT [Concomitant]

REACTIONS (1)
  - Rash [Not Recovered/Not Resolved]
